FAERS Safety Report 25947767 (Version 1)
Quarter: 2025Q4

REPORT INFORMATION
  Report Type: Spontaneous
  Country: US (occurrence: US)
  Receive Date: 20251022
  Receipt Date: 20251022
  Transmission Date: 20260118
  Serious: No
  Sender: REGENERON
  Company Number: US-REGENERON PHARMACEUTICALS, INC.-2025-014606

PATIENT
  Sex: Female

DRUGS (3)
  1. LIBTAYO [Suspect]
     Active Substance: CEMIPLIMAB-RWLC
     Indication: Squamous cell carcinoma of skin
  2. LORATADINE [Suspect]
     Active Substance: LORATADINE
     Indication: Premedication
  3. PEPCID AC [Suspect]
     Active Substance: FAMOTIDINE
     Indication: Premedication

REACTIONS (1)
  - Chills [Unknown]
